FAERS Safety Report 23472993 (Version 2)
Quarter: 2024Q3

REPORT INFORMATION
  Report Type: Spontaneous
  Country: FR (occurrence: FR)
  Receive Date: 20240203
  Receipt Date: 20240911
  Transmission Date: 20241017
  Serious: Yes (Hospitalization)
  Sender: TEVA
  Company Number: None

PATIENT
  Age: 37 Year
  Sex: Female
  Weight: 46 kg

DRUGS (14)
  1. HYDROXYZINE HYDROCHLORIDE [Suspect]
     Active Substance: HYDROXYZINE HYDROCHLORIDE
     Indication: Anxiety
     Dosage: (CHLORHYDRATE D^)
     Route: 048
     Dates: start: 20231108, end: 20231108
  2. LANSOPRAZOLE [Concomitant]
     Active Substance: LANSOPRAZOLE
     Indication: Product used for unknown indication
     Route: 048
  3. ATENOLOL [Concomitant]
     Active Substance: ATENOLOL
     Indication: Product used for unknown indication
     Route: 048
  4. SODIUM BICARBONATE [Concomitant]
     Active Substance: SODIUM BICARBONATE
     Indication: Product used for unknown indication
     Dosage: BICARBONATE DE SODIUM
     Route: 048
  5. CALCIDOSE [Concomitant]
     Indication: Product used for unknown indication
     Dosage: POWDER FOR ORAL SUSPENSION IN SACHET.
     Route: 048
  6. XYLOCAINE [Suspect]
     Active Substance: LIDOCAINE HYDROCHLORIDE
     Indication: Local anaesthesia
     Route: 058
     Dates: start: 20231108, end: 20231108
  7. AMOXICILLIN [Concomitant]
     Active Substance: AMOXICILLIN
     Indication: Product used for unknown indication
     Route: 048
  8. FOLIC ACID [Concomitant]
     Active Substance: FOLIC ACID
     Indication: Product used for unknown indication
     Route: 048
  9. LERCANIDIPINE HYDROCHLORIDE [Concomitant]
     Active Substance: LERCANIDIPINE HYDROCHLORIDE
     Indication: Product used for unknown indication
     Dosage: (CHLORHYDRATE DE)
     Route: 048
  10. SODIUM CHLORIDE [Concomitant]
     Active Substance: SODIUM CHLORIDE
     Indication: Product used for unknown indication
     Dosage: CHLORURE DE SODIUM
     Route: 042
     Dates: start: 20231108, end: 20231108
  11. AZITHROMYCIN [Concomitant]
     Active Substance: AZITHROMYCIN
     Indication: Product used for unknown indication
     Dosage: AZITHROMYCINE
     Route: 048
  12. SYMBICORT [Concomitant]
     Active Substance: BUDESONIDE\FORMOTEROL FUMARATE DIHYDRATE
     Indication: Product used for unknown indication
     Dosage: 400/12 MICROGRAMS/DOSE, POWDER FOR INHALATION
     Route: 048
  13. CELLCEPT [Concomitant]
     Active Substance: MYCOPHENOLATE MOFETIL
     Indication: Product used for unknown indication
     Route: 048
  14. ACETAMINOPHEN [Concomitant]
     Active Substance: ACETAMINOPHEN
     Indication: Product used for unknown indication
     Route: 048
     Dates: start: 20231108, end: 20231108

REACTIONS (1)
  - Generalised tonic-clonic seizure [Recovered/Resolved]

NARRATIVE: CASE EVENT DATE: 20231108
